FAERS Safety Report 4552185-4 (Version None)
Quarter: 2004Q4

REPORT INFORMATION
  Report Type: 
  Country: None (occurrence: None)
  Receive Date: 20041217
  Receipt Date: 20040806
  Transmission Date: 20050328
  Serious: No
  Sender: FDA-Public Use
  Company Number: 2004-BP-06179BP

PATIENT
  Age: 57 Year
  Sex: Female
  Weight: 77.1 kg

DRUGS (16)
  1. SPIRIVA [Suspect]
     Dosage: (18 MCG),IH
  2. ADVAIR (SERETIDE MITE) [Concomitant]
  3. ALBUTEROL [Concomitant]
  4. ASTELIN [Concomitant]
  5. CALCIUM (CALCIUM) [Concomitant]
  6. KLONOPIN [Concomitant]
  7. LACHYDRIN (LACTIC ACID) [Concomitant]
  8. LACTAID (TILACTASE) [Concomitant]
  9. MIACALCIN [Concomitant]
  10. MULTIVITAMIN [Concomitant]
  11. NIZORAL [Concomitant]
  12. OXYGEN (OXYGEN) [Concomitant]
  13. PATANOL [Concomitant]
  14. PROTONIX [Concomitant]
  15. QUININE (QUININE) [Concomitant]
  16. SNIGULAIR (MONTELUKAST) [Concomitant]

REACTIONS (6)
  - CHOKING [None]
  - DRY THROAT [None]
  - HOARSENESS [None]
  - INCREASED BRONCHIAL SECRETION [None]
  - INCREASED UPPER AIRWAY SECRETION [None]
  - THROAT TIGHTNESS [None]
